FAERS Safety Report 5262807-0 (Version None)
Quarter: 2007Q1

REPORT INFORMATION
  Report Type: 
  Country: None (occurrence: None)
  Receive Date: 20070312
  Receipt Date: 20070305
  Transmission Date: 20070707
  Serious: Yes (Other)
  Sender: FDA-Public Use
  Company Number: SE-GLAXOSMITHKLINE-B0460965A

PATIENT
  Age: 63 Year
  Sex: Female

DRUGS (4)
  1. LAMICTAL [Suspect]
     Indication: BIPOLAR DISORDER
     Dosage: 25MG PER DAY
     Dates: start: 20070101
  2. XANOR [Concomitant]
  3. PROPAVAN [Concomitant]
  4. IMOVANE [Concomitant]

REACTIONS (4)
  - C-REACTIVE PROTEIN INCREASED [None]
  - HEPATIC ENZYME INCREASED [None]
  - PAIN [None]
  - PYREXIA [None]
